FAERS Safety Report 6406312-4 (Version None)
Quarter: 2009Q4

REPORT INFORMATION
  Report Type: 
  Country: None (occurrence: None)
  Receive Date: 20091019
  Receipt Date: 20091013
  Transmission Date: 20100525
  Serious: Yes (Life-Threatening, Hospitalization)
  Sender: FDA-Public Use
  Company Number: PHHO2004AR10706

PATIENT
  Sex: Male
  Weight: 116 kg

DRUGS (7)
  1. BLINDED NO TREATMENT RECEIVED NOMED [Suspect]
     Indication: GLUCOSE TOLERANCE IMPAIRED
     Dosage: DOUBLE BLIND
     Route: 048
     Dates: start: 20020815
  2. BLINDED PLACEBO PLACEBO [Suspect]
     Indication: GLUCOSE TOLERANCE IMPAIRED
     Dosage: DOUBLE BLIND
     Route: 048
     Dates: start: 20020815
  3. STARLIX [Suspect]
     Indication: GLUCOSE TOLERANCE IMPAIRED
     Dosage: DOUBLE BLIND
     Route: 048
     Dates: start: 20020815
  4. PLACEBO OR VALSARTAN [Suspect]
     Indication: CARDIOVASCULAR DISORDER
     Dosage: DOUBLE BLIND
     Route: 048
     Dates: start: 20020815
  5. REVITEC [Concomitant]
     Indication: ISCHAEMIC CARDIOMYOPATHY
     Route: 048
  6. ASPIRIN [Concomitant]
     Indication: ISCHAEMIC CARDIOMYOPATHY
     Route: 048
  7. ATENOLOL [Concomitant]
     Indication: ISCHAEMIC CARDIOMYOPATHY
     Route: 048

REACTIONS (15)
  - BRONCHITIS [None]
  - BRONCHOPNEUMOPATHY [None]
  - CARDIAC FAILURE [None]
  - CARDIOMEGALY [None]
  - DISEASE PROGRESSION [None]
  - DYSPNOEA [None]
  - HAEMATURIA [None]
  - ILIAC ARTERY THROMBOSIS [None]
  - OEDEMA [None]
  - PERIPHERAL ARTERY ANEURYSM [None]
  - PROSTATE CANCER STAGE II [None]
  - PULMONARY CONGESTION [None]
  - PULMONARY EMBOLISM [None]
  - RALES [None]
  - RENAL NEOPLASM [None]
